FAERS Safety Report 8888000 (Version 2)
Quarter: 2013Q1

REPORT INFORMATION
  Report Type: Spontaneous
  Country: US (occurrence: US)
  Receive Date: 20121106
  Receipt Date: 20130117
  Transmission Date: 20140127
  Serious: Yes (Hospitalization)
  Sender: FDA-Public Use
  Company Number: US-BIOGENIDEC-2012BI049388

PATIENT
  Age: 31 Year
  Sex: Female

DRUGS (13)
  1. TYSABRI [Suspect]
     Indication: MULTIPLE SCLEROSIS
     Route: 042
     Dates: start: 20100708
  2. TIZANIDINE [Concomitant]
     Indication: MUSCLE SPASTICITY
  3. PRIMIDONE [Concomitant]
     Indication: TREMOR
  4. ZOLOFT [Concomitant]
     Indication: DEPRESSION
  5. METOPROLOL [Concomitant]
  6. FIBERCON [Concomitant]
  7. VITAMIN D [Concomitant]
     Indication: VITAMIN SUPPLEMENTATION
  8. AMPYRA [Concomitant]
     Indication: GAIT DISTURBANCE
  9. HYDROCODONE [Concomitant]
     Indication: PAIN
  10. IBUPROFEN [Concomitant]
     Indication: PAIN
  11. DITROPAN [Concomitant]
     Indication: HYPERTONIC BLADDER
  12. SPIRONOLACTONE [Concomitant]
  13. GABAPENTIN [Concomitant]
     Indication: NEURALGIA

REACTIONS (2)
  - Asthenia [Not Recovered/Not Resolved]
  - Urinary tract infection [Recovered/Resolved]
